FAERS Safety Report 5126924-8 (Version None)
Quarter: 2006Q4

REPORT INFORMATION
  Report Type: 
  Country: None (occurrence: None)
  Receive Date: 20061010
  Receipt Date: 20060925
  Transmission Date: 20070319
  Serious: Yes (Death, Other)
  Sender: FDA-Public Use
  Company Number: 2006119526

PATIENT
  Sex: Male

DRUGS (3)
  1. CELEBREX [Suspect]
     Dosage: ORAL
     Route: 048
     Dates: start: 19990504, end: 20030417
  2. BEXTRA [Suspect]
     Dosage: ORAL
     Route: 048
     Dates: start: 20030417
  3. VIOXX [Suspect]
     Dosage: ORAL
     Route: 048
     Dates: start: 20010604

REACTIONS (1)
  - THROMBOEMBOLIC STROKE [None]
